FAERS Safety Report 5627383-9 (Version None)
Quarter: 2008Q1

REPORT INFORMATION
  Report Type: 
  Country: None (occurrence: None)
  Receive Date: 20080215
  Receipt Date: 20080212
  Transmission Date: 20080703
  Serious: Yes (Death, Life-Threatening, Other)
  Sender: FDA-Public Use
  Company Number: GB-JNJFOC-20080201470

PATIENT
  Sex: Female
  Weight: 70 kg

DRUGS (11)
  1. REMICADE [Suspect]
     Indication: RHEUMATOID ARTHRITIS
     Route: 042
  2. METHOTREXATE [Concomitant]
  3. AMITRIPTYLINE HCL [Concomitant]
  4. ATENOLOL [Concomitant]
  5. BENDROFLUZIDE [Concomitant]
  6. CELECOXIB [Concomitant]
  7. CLOPIDOGREL [Concomitant]
  8. CO-PROXAMOL [Concomitant]
  9. FOLIC ACID [Concomitant]
  10. HRT [Concomitant]
  11. LANSOPRAZOLE [Concomitant]

REACTIONS (1)
  - MYOCARDIAL ISCHAEMIA [None]
